FAERS Safety Report 7803641-4 (Version None)
Quarter: 2011Q4

REPORT INFORMATION
  Report Type: 
  Country: None (occurrence: None)
  Receive Date: 20111010
  Receipt Date: 20110929
  Transmission Date: 20120403
  Serious: Yes (Hospitalization)
  Sender: FDA-Public Use
  Company Number: GB-BIOGENIDEC-2011BI037734

PATIENT
  Age: 44 Year
  Sex: Female

DRUGS (7)
  1. ACETAMINOPHEN [Concomitant]
     Indication: PAIN
  2. BACLOFEN [Concomitant]
     Indication: MUSCLE SPASTICITY
  3. ANTIMUSCARINIC AGENT [Concomitant]
     Indication: URINARY INCONTINENCE
  4. VITAMIN D SUPPLEMENT [Concomitant]
  5. IBUPROFEN [Concomitant]
     Indication: PAIN
  6. TYSABRI [Suspect]
     Indication: MULTIPLE SCLEROSIS
     Route: 042
     Dates: start: 20081216
  7. ANTIHYPERTENSIVE [Concomitant]
     Indication: HYPERTENSION

REACTIONS (1)
  - LIPOMA EXCISION [None]
